FAERS Safety Report 18338894 (Version 1)
Quarter: 2020Q4

REPORT INFORMATION
  Report Type: Spontaneous
  Country: US (occurrence: US)
  Receive Date: 20201002
  Receipt Date: 20201002
  Transmission Date: 20210113
  Serious: No
  Sender: FDA-Public Use
  Company Number: None

PATIENT
  Age: 27 Year
  Sex: Female
  Weight: 76.05 kg

DRUGS (8)
  1. CLARITIN [Concomitant]
     Active Substance: LORATADINE
  2. PROPANALOL [Concomitant]
  3. VITAMIN D [Concomitant]
     Active Substance: VITAMIN D NOS
  4. XANAX [Concomitant]
     Active Substance: ALPRAZOLAM
  5. OMEGA 3 [Concomitant]
     Active Substance: OMEGA-3 FATTY ACIDS
  6. UBRELVY [Suspect]
     Active Substance: UBROGEPANT
     Indication: MIGRAINE WITHOUT AURA
     Route: 048
     Dates: start: 20200925, end: 20201002
  7. VISIOBIOME PROBIOTICS [Concomitant]
  8. ALKA SELTZER CHEWABLES [Concomitant]

REACTIONS (3)
  - Gastritis [None]
  - Nightmare [None]
  - Abdominal pain upper [None]

NARRATIVE: CASE EVENT DATE: 20200930
